FAERS Safety Report 12133085 (Version 1)
Quarter: 2016Q1

REPORT INFORMATION
  Report Type: Other
  Country: US (occurrence: US)
  Receive Date: 20160301
  Receipt Date: 20160301
  Transmission Date: 20160526
  Serious: Yes (Other)
  Sender: FDA-Public Use
  Company Number: US-SILARX PHARMACEUTICALS, INC-1048529

PATIENT
  Sex: Male

DRUGS (2)
  1. SILTUSSIN SA [Suspect]
     Active Substance: GUAIFENESIN
  2. UNKNOWN [Suspect]
     Active Substance: UNSPECIFIED INGREDIENT

REACTIONS (6)
  - Tinnitus [None]
  - Anoxia [None]
  - Accidental overdose [None]
  - Syncope [None]
  - Vomiting [None]
  - Dizziness [None]
